FAERS Safety Report 8570485-8 (Version None)
Quarter: 2012Q3

REPORT INFORMATION
  Report Type: 
  Country: None (occurrence: None)
  Receive Date: 20120803
  Receipt Date: 20120725
  Transmission Date: 20120928
  Serious: No
  Sender: FDA-Public Use
  Company Number: US-ASTRAZENECA-2012SE52778

PATIENT
  Age: 71 Year
  Sex: Female
  Weight: 54.9 kg

DRUGS (2)
  1. MEDICATION [Concomitant]
     Indication: PAIN
  2. CRESTOR [Suspect]
     Indication: BLOOD CHOLESTEROL ABNORMAL
     Route: 048
     Dates: start: 20120724

REACTIONS (2)
  - PARAESTHESIA [None]
  - MUSCLE SPASMS [None]
